FAERS Safety Report 6370422-0 (Version None)
Quarter: 2009Q3

REPORT INFORMATION
  Report Type: 
  Country: None (occurrence: None)
  Receive Date: 20090921
  Receipt Date: 20090921
  Transmission Date: 20100115
  Serious: Yes (Hospitalization)
  Sender: FDA-Public Use
  Company Number: None

PATIENT
  Sex: Female
  Weight: 89.4 kg

DRUGS (3)
  1. BUSULFAN [Suspect]
     Dosage: 848 MG
     Dates: end: 20080721
  2. ETOPOSIDE [Suspect]
     Dosage: 3978 MG
     Dates: end: 20080722
  3. G-CSF (FILGRASTIM, AMGEN) [Suspect]
     Dosage: 5760 MG
     Dates: end: 20080804

REACTIONS (5)
  - CHEST PAIN [None]
  - CORONARY ARTERY DISEASE [None]
  - ELECTROCARDIOGRAM ST SEGMENT ELEVATION [None]
  - PLATELET COUNT DECREASED [None]
  - VENA CAVA THROMBOSIS [None]
